FAERS Safety Report 12950320 (Version 2)
Quarter: 2017Q1

REPORT INFORMATION
  Report Type: Spontaneous
  Country: US (occurrence: US)
  Receive Date: 20161117
  Receipt Date: 20170123
  Transmission Date: 20170428
  Serious: No
  Sender: FDA-Public Use
  Company Number: US-009507513-1610USA010234

PATIENT
  Age: 31 Year
  Sex: Female
  Weight: 74.38 kg

DRUGS (2)
  1. NEXPLANON [Suspect]
     Active Substance: ETONOGESTREL
     Dosage: 1 DF, 1 DF, EVERY 3 YEARS
     Route: 059
     Dates: start: 20160929
  2. NEXPLANON [Suspect]
     Active Substance: ETONOGESTREL
     Indication: CONTRACEPTION
     Dosage: 1 DF, EVERY 3 YEARS
     Route: 059
     Dates: start: 20160912, end: 20160915

REACTIONS (2)
  - Implant site infection [Recovered/Resolved]
  - Implant site swelling [Recovered/Resolved]

NARRATIVE: CASE EVENT DATE: 20160915
